FAERS Safety Report 8561505-5 (Version None)
Quarter: 2012Q3

REPORT INFORMATION
  Report Type: 
  Country: None (occurrence: None)
  Receive Date: 20120802
  Receipt Date: 20120723
  Transmission Date: 20120928
  Serious: Yes (Hospitalization)
  Sender: FDA-Public Use
  Company Number: US-JNJFOC-20120712908

PATIENT
  Sex: Male
  Weight: 59.6 kg

DRUGS (5)
  1. REMICADE [Suspect]
     Route: 042
     Dates: start: 20090731, end: 20100728
  2. REMICADE [Suspect]
     Dosage: FREQUENCY ^UNKNOWN^
     Route: 042
     Dates: start: 20100728, end: 20101217
  3. METHOTREXATE [Concomitant]
     Dates: start: 20120721
  4. REMICADE [Suspect]
     Indication: CROHN'S DISEASE
     Route: 042
     Dates: start: 20101217
  5. METHOTREXATE [Concomitant]
     Indication: CROHN'S DISEASE
     Dates: start: 20120319

REACTIONS (1)
  - CROHN'S DISEASE [None]
